FAERS Safety Report 24722147 (Version 2)
Quarter: 2024Q4

REPORT INFORMATION
  Report Type: Spontaneous
  Country: IT (occurrence: IT)
  Receive Date: 20241211
  Receipt Date: 20241226
  Transmission Date: 20250115
  Serious: Yes (Hospitalization)
  Sender: ELI LILLY AND COMPANY
  Company Number: IT-ELI_LILLY_AND_COMPANY-IT202412001188

PATIENT
  Age: 74 Year
  Sex: Female

DRUGS (2)
  1. MOUNJARO [Suspect]
     Active Substance: TIRZEPATIDE
     Indication: Weight control
     Dosage: 2.5 MG, WEEKLY (1/W)
     Route: 065
     Dates: start: 20241025
  2. MOUNJARO [Suspect]
     Active Substance: TIRZEPATIDE
     Indication: Weight control
     Dosage: 5 MG, WEEKLY (1/W)
     Route: 065
     Dates: start: 20241122, end: 20241129

REACTIONS (5)
  - Pain in extremity [Unknown]
  - Abdominal pain upper [Recovering/Resolving]
  - Back pain [Unknown]
  - Headache [Unknown]
  - Constipation [Unknown]

NARRATIVE: CASE EVENT DATE: 20240101
